FAERS Safety Report 4768025-4 (Version None)
Quarter: 2005Q3

REPORT INFORMATION
  Report Type: 
  Country: None (occurrence: None)
  Receive Date: 20050913
  Receipt Date: 20050825
  Transmission Date: 20060218
  Serious: Yes (Hospitalization)
  Sender: FDA-Public Use
  Company Number: 2005BI001512

PATIENT
  Age: 50 Year
  Sex: Female

DRUGS (10)
  1. AVONEX [Suspect]
     Indication: MULTIPLE SCLEROSIS
     Dosage: IM
     Dates: start: 20040808
  2. LASIX [Concomitant]
  3. LOPRESSOR [Concomitant]
  4. DEPAKOTE [Concomitant]
  5. NEURONTIN [Concomitant]
  6. VICODIN [Concomitant]
  7. DICLOFENAC [Concomitant]
  8. SOMA [Concomitant]
  9. FENTANYL [Concomitant]
  10. CELEBREX [Concomitant]

REACTIONS (1)
  - VIRAL PERICARDITIS [None]
